FAERS Safety Report 22020585 (Version 1)
Quarter: 2023Q1

REPORT INFORMATION
  Report Type: Spontaneous
  Country: US (occurrence: None)
  Receive Date: 20230217
  Receipt Date: 20230217
  Transmission Date: 20230418
  Serious: No
  Sender: FDA-Public Use
  Company Number: None

PATIENT
  Sex: Female

DRUGS (1)
  1. CAPECITABINE [Suspect]
     Active Substance: CAPECITABINE
     Indication: Anal cancer
     Dosage: 1500 MG TWICE A DAY ORAL
     Route: 048
     Dates: start: 20230131

REACTIONS (6)
  - Pyrexia [None]
  - Dehydration [None]
  - Cyst [None]
  - Nausea [None]
  - Diarrhoea [None]
  - Decreased appetite [None]
